FAERS Safety Report 24430292 (Version 2)
Quarter: 2025Q3

REPORT INFORMATION
  Report Type: Spontaneous
  Country: US (occurrence: US)
  Receive Date: 20241013
  Receipt Date: 20250810
  Transmission Date: 20251021
  Serious: Yes (Other)
  Sender: ALEXION PHARMACEUTICALS
  Company Number: US-AstraZeneca-CH-00708380A

PATIENT
  Sex: Male

DRUGS (1)
  1. BREZTRI [Suspect]
     Active Substance: BUDESONIDE\FORMOTEROL\GLYCOPYRROLATE

REACTIONS (6)
  - Back injury [Unknown]
  - Compression fracture [Unknown]
  - Device use issue [Unknown]
  - Therapeutic product effect decreased [Unknown]
  - Incorrect dose administered by device [Unknown]
  - Device delivery system issue [Unknown]
